FAERS Safety Report 5483577-7 (Version None)
Quarter: 2007Q4

REPORT INFORMATION
  Report Type: 
  Country: None (occurrence: None)
  Receive Date: 20071009
  Receipt Date: 20070925
  Transmission Date: 20080405
  Serious: Yes (Death)
  Sender: FDA-Public Use
  Company Number: MEDI-0006008

PATIENT

DRUGS (1)
  1. SYNAGIS [Suspect]
     Dates: start: 20070918, end: 20070918

REACTIONS (2)
  - CYANOSIS [None]
  - SUDDEN DEATH [None]
